FAERS Safety Report 11763492 (Version 1)
Quarter: 2015Q4

REPORT INFORMATION
  Report Type: Spontaneous
  Country: US (occurrence: US)
  Receive Date: 20151120
  Receipt Date: 20151120
  Transmission Date: 20160304
  Serious: No
  Sender: FDA-Public Use
  Company Number: US-ELI_LILLY_AND_COMPANY-US201302008130

PATIENT
  Age: 74 Year
  Sex: Female

DRUGS (1)
  1. FORTEO [Suspect]
     Active Substance: TERIPARATIDE
     Indication: OSTEOPOROSIS
     Dosage: UNK, QD
     Dates: start: 201302

REACTIONS (12)
  - Hypophagia [Not Recovered/Not Resolved]
  - Muscular weakness [Unknown]
  - Constipation [Unknown]
  - Back pain [Unknown]
  - Fear [Unknown]
  - Weight decreased [Not Recovered/Not Resolved]
  - Decreased activity [Unknown]
  - Abdominal distension [Unknown]
  - Pain [Not Recovered/Not Resolved]
  - Nausea [Unknown]
  - Sleep disorder due to a general medical condition [Unknown]
  - Malaise [Unknown]

NARRATIVE: CASE EVENT DATE: 201302
